FAERS Safety Report 13666140 (Version 1)
Quarter: 2017Q2

REPORT INFORMATION
  Report Type: Spontaneous
  Country: US (occurrence: US)
  Receive Date: 20170619
  Receipt Date: 20170619
  Transmission Date: 20170830
  Serious: No
  Sender: FDA-Public Use
  Company Number: US-ROCHE-1349803

PATIENT
  Sex: Female

DRUGS (6)
  1. XELODA [Suspect]
     Active Substance: CAPECITABINE
     Indication: BREAST CANCER
     Route: 065
     Dates: start: 201206, end: 201303
  2. XELODA [Suspect]
     Active Substance: CAPECITABINE
     Route: 065
     Dates: start: 201312
  3. LEVOTHYROXINE. [Concomitant]
     Active Substance: LEVOTHYROXINE
  4. XELODA [Suspect]
     Active Substance: CAPECITABINE
     Dosage: 2000 MG IN MORNING AND 1500 MG IN EVENING?ONE WEEK ON, ONE WEEK OFF
     Route: 065
  5. XELODA [Suspect]
     Active Substance: CAPECITABINE
     Dosage: 1500 MG IN MORNING AND 1500 MG IN EVENING?ONE WEEK ON, ONE WEEK OFF
     Route: 065
  6. LOVASTATIN. [Concomitant]
     Active Substance: LOVASTATIN
     Indication: BLOOD CHOLESTEROL INCREASED

REACTIONS (3)
  - Neoplasm progression [Unknown]
  - Palmar-plantar erythrodysaesthesia syndrome [Not Recovered/Not Resolved]
  - Hyperlipidaemia [Unknown]
